FAERS Safety Report 5885323-1 (Version None)
Quarter: 2008Q3

REPORT INFORMATION
  Report Type: 
  Country: None (occurrence: None)
  Receive Date: 20080915
  Receipt Date: 20080915
  Transmission Date: 20090109
  Serious: Yes (Other)
  Sender: FDA-Public Use
  Company Number: None

PATIENT
  Age: 31 Year
  Sex: Male
  Weight: 65.7716 kg

DRUGS (1)
  1. FLUTICASONE PROPIONATE [Suspect]
     Indication: SEASONAL ALLERGY
     Dosage: 50 MCG 2 SPRAYS/NOSTRIL D NASAL
     Route: 045
     Dates: start: 20080912, end: 20080913

REACTIONS (2)
  - RASH GENERALISED [None]
  - RASH PRURITIC [None]
